FAERS Safety Report 4518505-1 (Version None)
Quarter: 2004Q4

REPORT INFORMATION
  Report Type: 
  Country: None (occurrence: None)
  Receive Date: 20041203
  Receipt Date: 20041124
  Transmission Date: 20050328
  Serious: Yes (Death)
  Sender: FDA-Public Use
  Company Number: CH-MERCK-0411CHE00046

PATIENT
  Age: 35 Year
  Sex: Male

DRUGS (1)
  1. VIOXX [Suspect]
     Indication: ANKYLOSING SPONDYLITIS
     Route: 048
     Dates: start: 20030101, end: 20040101

REACTIONS (5)
  - ARRHYTHMIA [None]
  - CARDIOMEGALY [None]
  - INTRACARDIAC THROMBUS [None]
  - MYOCARDIAL INFARCTION [None]
  - THROMBOSIS [None]
